FAERS Safety Report 14245074 (Version 3)
Quarter: 2018Q2

REPORT INFORMATION
  Report Type: Spontaneous
  Country: JP (occurrence: JP)
  Receive Date: 20171202
  Receipt Date: 20180424
  Transmission Date: 20180711
  Serious: Yes (Hospitalization, Other)
  Sender: FDA-Public Use
  Company Number: JP-ACCORD-061521

PATIENT
  Age: 43 Year
  Sex: Female
  Weight: 53.4 kg

DRUGS (2)
  1. HERCEPTIN [Suspect]
     Active Substance: TRASTUZUMAB
     Indication: BREAST CANCER STAGE III
     Dosage: 300 MG /BODY
  2. DOCETAXEL. [Suspect]
     Active Substance: DOCETAXEL
     Indication: BREAST CANCER STAGE III
     Dosage: 110 MG / BODY

REACTIONS (5)
  - White blood cell count decreased [Recovered/Resolved]
  - Bone marrow failure [Recovered/Resolved]
  - Appendicitis [Recovered/Resolved]
  - Peritoneal abscess [Recovered/Resolved]
  - Gastroenteritis [Recovering/Resolving]
